FAERS Safety Report 8024896-X (Version None)
Quarter: 2012Q1

REPORT INFORMATION
  Report Type: 
  Country: None (occurrence: None)
  Receive Date: 20120105
  Receipt Date: 20120103
  Transmission Date: 20120608
  Serious: Yes (Death, Hospitalization, Other)
  Sender: FDA-Public Use
  Company Number: PHEH2008US09068

PATIENT
  Sex: Female

DRUGS (66)
  1. ZOMETA [Suspect]
     Dosage: 2 MG
     Dates: start: 20050512, end: 20071025
  2. METFORMIN HCL [Concomitant]
  3. VICODIN [Concomitant]
  4. AMOXIL ^AYERST LAB^ [Concomitant]
     Dosage: 500 MG
  5. FAMOTIDINE [Concomitant]
     Dosage: 20 MG
  6. CHEMOTHERAPEUTICS NOS [Concomitant]
  7. AVASTIN [Concomitant]
  8. PRINIVIL [Concomitant]
     Dosage: UNK
  9. DEXAMETHASONE [Concomitant]
     Dosage: 4 MG
  10. LASIX [Concomitant]
     Dosage: 40 MG / DAILY
     Route: 048
  11. TUSSI-ORGANIDIN ^HORNER^ [Concomitant]
     Dosage: UNK
  12. OCUFLOX [Concomitant]
     Dosage: UNK
  13. ATROVENT [Concomitant]
     Dosage: UNK
  14. INDOMETHACIN [Concomitant]
     Dosage: 50 MG
  15. ARANESP [Concomitant]
     Indication: ANAEMIA
  16. HYDROCHLOROTHIAZIDE [Concomitant]
  17. GEMFIBROZIL [Concomitant]
  18. PRILOSEC [Concomitant]
  19. AROMASIN [Concomitant]
     Dosage: 25MG DAILY
  20. CARISOPRODOL [Concomitant]
     Dosage: 350 MG
  21. PREDNISOLONE ACETATE [Concomitant]
     Dosage: UNK
  22. FASLODEX [Concomitant]
  23. IBUPROFEN (ADVIL) [Concomitant]
     Dosage: UNK
  24. XELODA [Concomitant]
     Dosage: UNK
  25. CEPHRADINE [Concomitant]
     Dosage: 250 MG
  26. KETOPROFEN [Concomitant]
     Dosage: 200 MG
  27. AMBIEN [Concomitant]
     Dosage: 10 MG
  28. CYCLOGYL [Concomitant]
     Dosage: UNK
  29. LORATADINE [Concomitant]
     Dosage: 10 MG, QD
  30. ZESTRIL [Concomitant]
     Indication: HYPERTENSION
     Dosage: 10 MG / DAILY
  31. COQ10 [Concomitant]
     Dosage: UNK
  32. HYDROCODONE BITARTRATE AND ACETAMINOPHEN [Concomitant]
     Dosage: UNK
  33. CEPHALEXIN [Concomitant]
     Dosage: 500 MG
  34. TRIAMCINOLONE [Concomitant]
     Dosage: UNK
  35. OXYCODONE HCL AND ACETAMINOPHEN [Concomitant]
     Dosage: UNK
  36. LYRICA [Concomitant]
     Dosage: 50 MG
  37. ACETYLSALICYLIC ACID SRT [Concomitant]
     Dosage: UNK
  38. CALCIUM ACETATE [Concomitant]
  39. ORUVAIL [Concomitant]
     Dosage: 200 MG / DAILY
     Route: 048
  40. PROPACET 100 [Concomitant]
     Dosage: UNK
  41. DETROL [Concomitant]
     Dosage: 4 MG
  42. CYCLOBENZAPRINE [Concomitant]
     Dosage: 10 MG
  43. PROCHLORPERAZINE [Concomitant]
     Dosage: 10 MG
  44. OCUVITE LUTEIN AMD [Concomitant]
     Dosage: UNK
  45. PRESERVISION /USA/ [Concomitant]
  46. ZOMETA [Suspect]
     Indication: HYPERCALCAEMIA
     Dosage: 4 MG /  MONTHLY
     Route: 042
     Dates: end: 20071025
  47. TAMOXIFEN CITRATE [Concomitant]
  48. TAXOL [Concomitant]
     Dosage: UNK
  49. SELDANE [Concomitant]
     Dosage: 60 MG
  50. ALPRAZOLAM [Concomitant]
     Dosage: 0.25 MG
  51. ALLEGRA [Concomitant]
     Dosage: 60 MG
  52. CELEBREX [Concomitant]
     Dosage: 200 MG
  53. RELAFEN [Concomitant]
  54. AREDIA [Suspect]
     Dosage: UNK
     Dates: start: 20030922, end: 20050101
  55. LISINOPRIL [Concomitant]
  56. NABUMETONE [Concomitant]
  57. KLOR-CON [Concomitant]
  58. MULTI-VITAMINS [Concomitant]
  59. GLUCOSAMINE [Concomitant]
     Dosage: 500 MG / DAILY
     Route: 048
  60. LIVOSTIN [Concomitant]
     Dosage: UNK
  61. PROTONIX [Concomitant]
     Dosage: 40 MG
  62. POTASSIUM CHLORIDE [Concomitant]
     Dosage: UNK
  63. MORPHINE SULFATE [Concomitant]
     Dosage: 15 MG
  64. AZITHROMYCIN [Concomitant]
     Dosage: 250 MG
  65. NEURONTIN [Concomitant]
     Indication: ANALGESIC THERAPY
  66. FOSAMAX [Concomitant]

REACTIONS (75)
  - POLYP [None]
  - DISABILITY [None]
  - ANHEDONIA [None]
  - OVERWEIGHT [None]
  - MUSCULOSKELETAL PAIN [None]
  - HEPATIC LESION [None]
  - INTERVERTEBRAL DISC SPACE NARROWING [None]
  - CEREBRAL ATROPHY [None]
  - CEREBRAL ISCHAEMIA [None]
  - WALKING AID USER [None]
  - BONE PAIN [None]
  - NEUROPATHY PERIPHERAL [None]
  - ASTHENIA [None]
  - SPINAL COLUMN STENOSIS [None]
  - CATARACT [None]
  - BLOOD CREATININE INCREASED [None]
  - ANAEMIA [None]
  - TYPE 2 DIABETES MELLITUS [None]
  - ARTHROPATHY [None]
  - METASTASES TO LUNG [None]
  - LUNG NEOPLASM [None]
  - ARTHRALGIA [None]
  - HYPOAESTHESIA [None]
  - PARAESTHESIA [None]
  - CHOLELITHIASIS [None]
  - BREAST CANCER [None]
  - FIBULA FRACTURE [None]
  - BASAL CELL CARCINOMA [None]
  - EPICONDYLITIS [None]
  - GASTROOESOPHAGEAL REFLUX DISEASE [None]
  - URINARY TRACT INFECTION [None]
  - OEDEMA PERIPHERAL [None]
  - PYREXIA [None]
  - BLOOD COUNT ABNORMAL [None]
  - FURUNCLE [None]
  - ANKLE FRACTURE [None]
  - ROTATOR CUFF SYNDROME [None]
  - CARDIAC FAILURE CONGESTIVE [None]
  - INJURY [None]
  - DRUG INTOLERANCE [None]
  - PAIN IN EXTREMITY [None]
  - MALAISE [None]
  - DISORIENTATION [None]
  - BREAST CANCER METASTATIC [None]
  - UTERINE HAEMORRHAGE [None]
  - SYNOVIAL CYST [None]
  - ANXIETY [None]
  - HYPERTENSION [None]
  - FLUID RETENTION [None]
  - HEPATIC CYST [None]
  - CONSTIPATION [None]
  - OSTEONECROSIS OF JAW [None]
  - ATELECTASIS [None]
  - PERIPHERAL VASCULAR DISORDER [None]
  - MIGRAINE [None]
  - PATHOLOGICAL FRACTURE [None]
  - BACK PAIN [None]
  - UTERINE CERVICAL SQUAMOUS METAPLASIA [None]
  - OSTEOARTHRITIS [None]
  - PAIN [None]
  - INTERVERTEBRAL DISC PROTRUSION [None]
  - HERPES ZOSTER [None]
  - NAUSEA [None]
  - DEPRESSED LEVEL OF CONSCIOUSNESS [None]
  - NEOPLASM MALIGNANT [None]
  - CERVIX HAEMORRHAGE UTERINE [None]
  - SEBORRHOEIC KERATOSIS [None]
  - BONE DISORDER [None]
  - TOOTH ABSCESS [None]
  - HYPERCHOLESTEROLAEMIA [None]
  - INTERVERTEBRAL DISC DEGENERATION [None]
  - PLEURAL EFFUSION [None]
  - METASTASES TO LIVER [None]
  - DYSPNOEA [None]
  - RADICULOPATHY [None]
